FAERS Safety Report 4565335-0 (Version None)
Quarter: 2005Q1

REPORT INFORMATION
  Report Type: 
  Country: None (occurrence: None)
  Receive Date: 20050126
  Receipt Date: 20050119
  Transmission Date: 20050727
  Serious: Yes (Hospitalization)
  Sender: FDA-Public Use
  Company Number: EWC041241993

PATIENT
  Age: 32 Year
  Sex: Male
  Weight: 90 kg

DRUGS (2)
  1. OLANZAPINE-LONG-ACTING              (DEPOT) [Suspect]
     Indication: SCHIZOPHRENIA
     Dosage: 405 MG OTHER
     Route: 030
     Dates: start: 20041221, end: 20041221
  2. FLUANXOL                     (FLUPENTIXOL DECANOATE) [Concomitant]

REACTIONS (14)
  - CONFUSIONAL STATE [None]
  - DIZZINESS [None]
  - EXTENSOR PLANTAR RESPONSE [None]
  - GENERAL PHYSICAL HEALTH DETERIORATION [None]
  - MEDICATION ERROR [None]
  - MIOSIS [None]
  - MOVEMENT DISORDER [None]
  - PUPILLARY LIGHT REFLEX TESTS ABNORMAL [None]
  - SCHIZOPHRENIA, PARANOID TYPE [None]
  - SEDATION [None]
  - SOMNOLENCE [None]
  - SPEECH DISORDER [None]
  - UNRESPONSIVE TO PAIN STIMULI [None]
  - UNRESPONSIVE TO VERBAL STIMULI [None]
